FAERS Safety Report 13087737 (Version 1)
Quarter: 2017Q1

REPORT INFORMATION
  Report Type: Spontaneous
  Country: US (occurrence: US)
  Receive Date: 20170105
  Receipt Date: 20170105
  Transmission Date: 20170428
  Serious: No
  Sender: FDA-Public Use
  Company Number: US-JNJFOC-20161221994

PATIENT
  Sex: Female

DRUGS (10)
  1. ZANTAC [Suspect]
     Active Substance: RANITIDINE HYDROCHLORIDE
     Indication: ABDOMINAL PAIN UPPER
     Route: 065
     Dates: start: 20160903
  2. XELJANZ [Concomitant]
     Active Substance: TOFACITINIB CITRATE
     Indication: ANKYLOSING SPONDYLITIS
     Route: 065
     Dates: start: 20160913, end: 20161004
  3. PEPCID [Suspect]
     Active Substance: FAMOTIDINE
     Indication: ABDOMINAL DISTENSION
     Route: 065
     Dates: start: 20160903
  4. PEPCID [Suspect]
     Active Substance: FAMOTIDINE
     Indication: ADVERSE DRUG REACTION
     Route: 065
     Dates: start: 20160903
  5. ZANTAC [Suspect]
     Active Substance: RANITIDINE HYDROCHLORIDE
     Indication: ADVERSE DRUG REACTION
     Route: 065
     Dates: start: 20160903
  6. XELJANZ [Concomitant]
     Active Substance: TOFACITINIB CITRATE
     Indication: ANKYLOSING SPONDYLITIS
     Route: 065
     Dates: start: 20160831, end: 20160912
  7. BENADRYL [Suspect]
     Active Substance: DIPHENHYDRAMINE HYDROCHLORIDE
     Indication: ADVERSE DRUG REACTION
     Route: 065
     Dates: start: 20160903
  8. PEPCID [Suspect]
     Active Substance: FAMOTIDINE
     Indication: ABDOMINAL PAIN UPPER
     Route: 065
     Dates: start: 20160903
  9. ZANTAC [Suspect]
     Active Substance: RANITIDINE HYDROCHLORIDE
     Indication: ABDOMINAL DISTENSION
     Route: 065
     Dates: start: 20160903
  10. BENADRYL [Suspect]
     Active Substance: DIPHENHYDRAMINE HYDROCHLORIDE
     Indication: NAUSEA
     Route: 065
     Dates: start: 20160903

REACTIONS (1)
  - Drug ineffective for unapproved indication [Unknown]
